FAERS Safety Report 9622683 (Version 2)
Quarter: 2013Q4

REPORT INFORMATION
  Report Type: Spontaneous
  Country: US (occurrence: None)
  Receive Date: 20131010
  Receipt Date: 20131125
  Transmission Date: 20140711
  Serious: Yes (Hospitalization)
  Sender: FDA-Public Use
  Company Number: 2013-US-001553

PATIENT
  Age: 33 Year
  Sex: Male
  Weight: 84.3 kg

DRUGS (4)
  1. XYREM [Suspect]
     Indication: NARCOLEPSY
     Route: 048
     Dates: start: 20121011, end: 2012
  2. PAXIL (PAROXETINE HYDROCHLORIDE) [Concomitant]
  3. CLONAZEPAM (CLONAZEPAM) (CLONAZEPAM) [Concomitant]
  4. FLONASE (FLUTICASONE PROPIONATE) [Concomitant]

REACTIONS (11)
  - Anger [None]
  - Muscle twitching [None]
  - Tinnitus [None]
  - Tachyphrenia [None]
  - Bruxism [None]
  - Discomfort [None]
  - Insomnia [None]
  - Crying [None]
  - Weight decreased [None]
  - Initial insomnia [None]
  - Middle insomnia [None]
